FAERS Safety Report 26137141 (Version 1)
Quarter: 2025Q4

REPORT INFORMATION
  Report Type: Spontaneous
  Country: GB (occurrence: GB)
  Receive Date: 20251209
  Receipt Date: 20251209
  Transmission Date: 20260118
  Serious: Yes (Other)
  Sender: VERTEX
  Company Number: None

PATIENT
  Sex: Female

DRUGS (1)
  1. ALYFTREK [Suspect]
     Active Substance: DEUTIVACAFTOR\TEZACAFTOR\VANZACAFTOR
     Indication: Cystic fibrosis
     Dosage: 125/50/10MG DAILY

REACTIONS (3)
  - Amnesia [Unknown]
  - Migraine [Unknown]
  - Adverse drug reaction [Unknown]

NARRATIVE: CASE EVENT DATE: 20251202
